FAERS Safety Report 11249097 (Version 1)
Quarter: 2015Q3

REPORT INFORMATION
  Report Type: Spontaneous
  Country: US (occurrence: US)
  Receive Date: 20150708
  Receipt Date: 20150708
  Transmission Date: 20151125
  Serious: Yes (Other)
  Sender: FDA-Public Use
  Company Number: US-AMGEN-USASP2015065411

PATIENT
  Age: 46 Year
  Sex: Female

DRUGS (4)
  1. NEXIUM [Concomitant]
     Active Substance: ESOMEPRAZOLE MAGNESIUM
     Indication: DYSPEPSIA
     Dosage: 20 MG, QD
     Route: 048
  2. FLEXERIL [Concomitant]
     Active Substance: CYCLOBENZAPRINE HYDROCHLORIDE
     Indication: MUSCLE SPASMS
     Dosage: UNK, UNK TIMES A DAY AS NEEDED
     Route: 048
  3. ENBREL [Suspect]
     Active Substance: ETANERCEPT
     Indication: RHEUMATOID ARTHRITIS
     Dosage: 50 MG, QWK, ON SUNDAY
     Route: 065
     Dates: start: 200512, end: 20150628
  4. PROBIOTIC                          /06395501/ [Concomitant]
     Indication: BOWEL MOVEMENT IRREGULARITY
     Dosage: UNK

REACTIONS (15)
  - Rheumatoid factor increased [Unknown]
  - Hot flush [Not Recovered/Not Resolved]
  - Spinal fusion surgery [Unknown]
  - Blood potassium decreased [Not Recovered/Not Resolved]
  - Hypertension [Not Recovered/Not Resolved]
  - Drug effect decreased [Not Recovered/Not Resolved]
  - Secretion discharge [Not Recovered/Not Resolved]
  - Inflammatory marker increased [Not Recovered/Not Resolved]
  - Asthma [Unknown]
  - Road traffic accident [Recovered/Resolved]
  - Drug resistance [Not Recovered/Not Resolved]
  - Red blood cell sedimentation rate increased [Unknown]
  - Intervertebral disc protrusion [Unknown]
  - Fluid retention [Not Recovered/Not Resolved]
  - Hypersensitivity [Unknown]

NARRATIVE: CASE EVENT DATE: 201201
